FAERS Safety Report 8107448-2 (Version None)
Quarter: 2012Q1

REPORT INFORMATION
  Report Type: 
  Country: None (occurrence: None)
  Receive Date: 20120202
  Receipt Date: 20120130
  Transmission Date: 20120608
  Serious: Yes (Life-Threatening)
  Sender: FDA-Public Use
  Company Number: BE-B.I. PHARMACEUTICALS,INC./RIDGEFIELD-2012-BL-00062BL

PATIENT
  Sex: Male
  Weight: 100 kg

DRUGS (16)
  1. EFFEXOR [Concomitant]
     Dosage: 75 MG
     Route: 048
  2. MEDROL [Concomitant]
     Route: 048
  3. PANTOPRAZOLE [Concomitant]
     Dosage: 20 MG
  4. EMCONCOR MITIS [Concomitant]
     Dosage: 5 MG
     Route: 048
  5. LACTULOSE [Concomitant]
  6. SPIRIVA [Concomitant]
  7. FLUTICASONE PROPIONATE/SALMETEROL [Concomitant]
  8. DUOVENT [Concomitant]
  9. PRADAXA [Suspect]
     Dosage: 220 MG
     Route: 048
  10. LASIX [Concomitant]
     Route: 048
  11. CALCIUM CARBONATE [Concomitant]
  12. GLURENORM [Concomitant]
     Dosage: 30 MG
     Route: 048
  13. RAMIPRIL [Concomitant]
     Dosage: 5 MG
  14. CRESTOR [Concomitant]
     Dosage: 10 MG
     Route: 048
  15. NESTROLAN [Concomitant]
     Dosage: 100 MG
     Route: 048
  16. ALLOPURINOL [Concomitant]
     Dosage: 100 MG

REACTIONS (1)
  - HYPOVOLAEMIC SHOCK [None]
